FAERS Safety Report 5431497-6 (Version None)
Quarter: 2007Q3

REPORT INFORMATION
  Report Type: 
  Country: None (occurrence: None)
  Receive Date: 20070830
  Receipt Date: 20070723
  Transmission Date: 20080115
  Serious: No
  Sender: FDA-Public Use
  Company Number: A0665791A

PATIENT
  Sex: Male

DRUGS (2)
  1. WELLBUTRIN XL [Suspect]
     Indication: DEPRESSION
     Dosage: 300MG PER DAY
     Route: 048
  2. WELLBUTRIN SR [Suspect]
     Indication: DEPRESSION
     Dosage: 75MG PER DAY
     Route: 048

REACTIONS (3)
  - DRUG INEFFECTIVE [None]
  - HYPERSENSITIVITY [None]
  - WRONG TECHNIQUE IN DRUG USAGE PROCESS [None]
